FAERS Safety Report 23894902 (Version 1)
Quarter: 2024Q2

REPORT INFORMATION
  Report Type: Spontaneous
  Country: CN (occurrence: CN)
  Receive Date: 20240524
  Receipt Date: 20240524
  Transmission Date: 20240716
  Serious: Yes (Other)
  Sender: FDA-Public Use
  Company Number: CN-BoehringerIngelheim-2024-BI-028360

PATIENT
  Age: 61 Year
  Sex: Female
  Weight: 65 kg

DRUGS (2)
  1. ALTEPLASE [Suspect]
     Active Substance: ALTEPLASE
     Indication: Cerebral infarction
     Route: 042
     Dates: start: 20240512, end: 20240512
  2. ALTEPLASE [Suspect]
     Active Substance: ALTEPLASE
     Dosage: VIA MICROPUMP
     Route: 042
     Dates: start: 20240512, end: 20240512

REACTIONS (5)
  - Subdural haematoma [Unknown]
  - Headache [Unknown]
  - Brain stem haemorrhage [Unknown]
  - Cerebellar haemorrhage [Unknown]
  - Gingival bleeding [Unknown]

NARRATIVE: CASE EVENT DATE: 20240512
